FAERS Safety Report 17823199 (Version 7)
Quarter: 2020Q3

REPORT INFORMATION
  Report Type: Report from Study
  Country: CA (occurrence: CA)
  Receive Date: 20200526
  Receipt Date: 20200721
  Transmission Date: 20201102
  Serious: Yes (Hospitalization, Other)
  Sender: FDA-Public Use
  Company Number: CA-GLAXOSMITHKLINE-CA2020AMR087081

PATIENT
  Sex: Female

DRUGS (2)
  1. SALBUTAMOL SULPHATE [Suspect]
     Active Substance: ALBUTEROL SULFATE
     Indication: PRODUCT USED FOR UNKNOWN INDICATION
     Dosage: UNK
  2. NUCALA [Concomitant]
     Active Substance: MEPOLIZUMAB
     Indication: ASTHMA
     Dosage: 100 MG
     Dates: start: 20200616

REACTIONS (12)
  - Eosinophilic granulomatosis with polyangiitis [Recovering/Resolving]
  - Malaise [Recovering/Resolving]
  - Productive cough [Recovering/Resolving]
  - Multiple sclerosis [Recovering/Resolving]
  - Pulmonary congestion [Recovering/Resolving]
  - Autoimmune disorder [Recovering/Resolving]
  - Pneumonia [Recovering/Resolving]
  - Pyrexia [Recovering/Resolving]
  - Therapy interrupted [Recovered/Resolved]
  - Vasculitis [Recovering/Resolving]
  - COVID-19 [Recovered/Resolved]
  - Coma [Recovered/Resolved]
